FAERS Safety Report 15803429 (Version 1)
Quarter: 2019Q1

REPORT INFORMATION
  Report Type: Spontaneous
  Country: US (occurrence: US)
  Receive Date: 20190109
  Receipt Date: 20190109
  Transmission Date: 20190417
  Serious: Yes (Hospitalization)
  Sender: FDA-Public Use
  Company Number: US-ASSERTIO THERAPEUTICS, INC.-US-2019DEP000006

PATIENT

DRUGS (1)
  1. GRALISE [Suspect]
     Active Substance: GABAPENTIN
     Indication: BREAST PAIN
     Dosage: 1200 MG, QD
     Route: 048
     Dates: start: 20180122

REACTIONS (3)
  - Product use in unapproved indication [Unknown]
  - Drug titration error [Unknown]
  - Surgery [Unknown]

NARRATIVE: CASE EVENT DATE: 2018
